FAERS Safety Report 17296149 (Version 1)
Quarter: 2020Q1

REPORT INFORMATION
  Report Type: Spontaneous
  Country: US (occurrence: US)
  Receive Date: 20200121
  Receipt Date: 20200121
  Transmission Date: 20200409
  Serious: Yes (Hospitalization, Other)
  Sender: FDA-Public Use
  Company Number: US-BRISTOL-MYERS SQUIBB COMPANY-BMS-2020-003633

PATIENT
  Sex: Male
  Weight: 51.26 kg

DRUGS (2)
  1. METOPROLOL. [Concomitant]
     Active Substance: METOPROLOL
     Indication: PRODUCT USED FOR UNKNOWN INDICATION
     Dosage: UNK
     Route: 065
  2. ELIQUIS [Suspect]
     Active Substance: APIXABAN
     Indication: CEREBROVASCULAR ACCIDENT PROPHYLAXIS
     Dosage: UNK
     Route: 048
     Dates: start: 202001

REACTIONS (8)
  - Weight decreased [Unknown]
  - Cough [Unknown]
  - Pulmonary congestion [Unknown]
  - Cardiac failure [Unknown]
  - Infection [Unknown]
  - Bile duct cancer [Unknown]
  - Haemorrhage [Unknown]
  - Pneumonia [Unknown]
